FAERS Safety Report 7134808-9 (Version None)
Quarter: 2010Q4

REPORT INFORMATION
  Report Type: 
  Country: None (occurrence: None)
  Receive Date: 20101130
  Receipt Date: 20101130
  Transmission Date: 20110411
  Serious: No
  Sender: FDA-Public Use
  Company Number: None

PATIENT
  Age: 15 Year
  Sex: Male
  Weight: 113.3993 kg

DRUGS (1)
  1. TWYNSTA [Suspect]
     Indication: BLOOD PRESSURE INCREASED
     Dosage: 20MG 1/DAY PO
     Route: 048
     Dates: start: 20100909, end: 20100914

REACTIONS (3)
  - ACTIVITIES OF DAILY LIVING IMPAIRED [None]
  - ANXIETY [None]
  - CHEST PAIN [None]
